FAERS Safety Report 5548611-4 (Version None)
Quarter: 2007Q4

REPORT INFORMATION
  Report Type: 
  Country: None (occurrence: None)
  Receive Date: 20071211
  Receipt Date: 20070410
  Transmission Date: 20080405
  Serious: No
  Sender: FDA-Public Use
  Company Number: US-AMGEN-KDL214099

PATIENT
  Sex: Male

DRUGS (12)
  1. ENBREL [Suspect]
     Indication: RHEUMATOID ARTHRITIS
     Route: 058
     Dates: start: 20060501
  2. METHOTREXATE [Concomitant]
     Route: 048
     Dates: start: 20060701
  3. ACETAMINOPHEN [Concomitant]
     Route: 048
  4. ALENDRONATE SODIUM [Concomitant]
     Route: 048
  5. CALCIUM WITH VITAMIN D [Concomitant]
     Route: 048
  6. DOCUSATE SODIUM [Concomitant]
     Route: 048
  7. ETANERCEPT [Concomitant]
     Route: 058
  8. ETODOLAC [Concomitant]
     Route: 048
  9. FOLIC ACID [Concomitant]
     Route: 048
  10. HYDROCORTISONE [Concomitant]
     Route: 061
  11. OMEPRAZOLE [Concomitant]
     Route: 048
  12. PREDNISONE [Concomitant]
     Route: 048

REACTIONS (19)
  - ARTHRALGIA [None]
  - BACK PAIN [None]
  - BLOOD CREATININE INCREASED [None]
  - CARPAL TUNNEL SYNDROME [None]
  - DRUG INEFFECTIVE [None]
  - DYSPNOEA [None]
  - GASTROOESOPHAGEAL REFLUX DISEASE [None]
  - HAEMATURIA [None]
  - HYDROCELE [None]
  - HYPERTENSION [None]
  - HYPOTHYROIDISM [None]
  - JOINT EFFUSION [None]
  - MEAN CELL VOLUME ABNORMAL [None]
  - MUSCULOSKELETAL STIFFNESS [None]
  - NODULE [None]
  - PROTEIN TOTAL DECREASED [None]
  - RED BLOOD CELL COUNT DECREASED [None]
  - VISUAL DISTURBANCE [None]
  - WHITE BLOOD CELL COUNT INCREASED [None]
